FAERS Safety Report 6739293-4 (Version None)
Quarter: 2010Q2

REPORT INFORMATION
  Report Type: 
  Country: None (occurrence: None)
  Receive Date: 20100525
  Receipt Date: 20100512
  Transmission Date: 20101027
  Serious: No
  Sender: FDA-Public Use
  Company Number: PHHY2010US10530

PATIENT
  Sex: Male
  Weight: 80 kg

DRUGS (15)
  1. EXJADE [Suspect]
     Indication: HODGKIN'S DISEASE
     Dosage: 1500 MG DAILY
     Route: 048
     Dates: start: 20090611, end: 20100212
  2. ATENOLOL [Concomitant]
  3. AMARYL [Concomitant]
  4. VALTREX [Concomitant]
  5. GLUMETZA [Concomitant]
  6. ZANTAC [Concomitant]
  7. POTASSIUM [Concomitant]
  8. DYAZIDE [Concomitant]
  9. NEXIUM [Concomitant]
  10. PREDNISONE [Concomitant]
  11. CARDURA [Concomitant]
  12. BACTRIM [Concomitant]
  13. MULTIVITAMIN [Concomitant]
  14. LUTEIN [Concomitant]
  15. FLOMAX [Concomitant]

REACTIONS (3)
  - ABDOMINAL DISCOMFORT [None]
  - GASTRITIS [None]
  - ULCER [None]
